FAERS Safety Report 12783065 (Version 1)
Quarter: 2016Q3

REPORT INFORMATION
  Report Type: Spontaneous
  Country: US (occurrence: US)
  Receive Date: 20160926
  Receipt Date: 20160926
  Transmission Date: 20161109
  Serious: Yes (Life-Threatening, Hospitalization, Other)
  Sender: FDA-Public Use
  Company Number: None

PATIENT
  Age: 63 Year
  Sex: Female
  Weight: 74.7 kg

DRUGS (16)
  1. LEVOTHYROXINE. [Concomitant]
     Active Substance: LEVOTHYROXINE
  2. PREDNISONE. [Concomitant]
     Active Substance: PREDNISONE
  3. TRAZODONE [Concomitant]
     Active Substance: TRAZODONE HYDROCHLORIDE
  4. VITAMIN D [Concomitant]
     Active Substance: CHOLECALCIFEROL
  5. GABAPENTIN. [Concomitant]
     Active Substance: GABAPENTIN
  6. XELJANZ [Concomitant]
     Active Substance: TOFACITINIB CITRATE
  7. BIOTIN [Concomitant]
     Active Substance: BIOTIN
  8. FLUORESCEIN [Suspect]
     Active Substance: FLUORESCEIN
     Indication: EYE LASER SURGERY
     Route: 047
     Dates: start: 20160831, end: 20160831
  9. FOLIC ACID. [Concomitant]
     Active Substance: FOLIC ACID
  10. ALPRAZOLAM. [Concomitant]
     Active Substance: ALPRAZOLAM
  11. MAXIDE/HCTZ [Concomitant]
  12. MEGA RED [Concomitant]
  13. OMEPRAZOLE. [Concomitant]
     Active Substance: OMEPRAZOLE
  14. PAXIL [Concomitant]
     Active Substance: PAROXETINE HYDROCHLORIDE
  15. PRAVASTATIN. [Concomitant]
     Active Substance: PRAVASTATIN
  16. TRAMADOL. [Concomitant]
     Active Substance: TRAMADOL

REACTIONS (2)
  - Documented hypersensitivity to administered product [None]
  - Anaphylactic reaction [None]

NARRATIVE: CASE EVENT DATE: 20160831
